FAERS Safety Report 23082422 (Version 1)
Quarter: 2023Q4

REPORT INFORMATION
  Report Type: Spontaneous
  Country: US (occurrence: US)
  Receive Date: 20231019
  Receipt Date: 20231019
  Transmission Date: 20240110
  Serious: Yes (Death, Hospitalization, Other)
  Sender: FDA-Public Use
  Company Number: US-ADVANZ PHARMA-202310008885

PATIENT

DRUGS (2)
  1. DIGOXIN [Suspect]
     Active Substance: DIGOXIN
     Indication: Atrial fibrillation
     Dosage: UNK
  2. APIXABAN [Suspect]
     Active Substance: APIXABAN
     Indication: Atrial fibrillation
     Dosage: UNK

REACTIONS (11)
  - Toxicity to various agents [Fatal]
  - Cardioactive drug level increased [Fatal]
  - Acute kidney injury [Fatal]
  - Renal impairment [Fatal]
  - Confusional state [Fatal]
  - Encephalopathy [Recovering/Resolving]
  - Septic shock [Recovering/Resolving]
  - Dyspnoea [Recovering/Resolving]
  - Metabolic acidosis [Recovering/Resolving]
  - Diarrhoea [Recovering/Resolving]
  - Vomiting [Recovering/Resolving]
